FAERS Safety Report 25871386 (Version 2)
Quarter: 2025Q4

REPORT INFORMATION
  Report Type: Spontaneous
  Country: EU (occurrence: EU)
  Receive Date: 20251001
  Receipt Date: 20251016
  Transmission Date: 20260118
  Serious: Yes (Hospitalization, Other)
  Sender: MYLAN
  Company Number: EU-SANDOZ-SDZ2025DE052287

PATIENT
  Age: 77 Year

DRUGS (44)
  1. AMLODIPINE [Suspect]
     Active Substance: AMLODIPINE BESYLATE
     Indication: Hypertension
     Dosage: UNK
  2. AMLODIPINE [Suspect]
     Active Substance: AMLODIPINE BESYLATE
     Dosage: UNK
     Route: 065
  3. AMLODIPINE [Suspect]
     Active Substance: AMLODIPINE BESYLATE
     Dosage: UNK
     Route: 065
  4. AMLODIPINE [Suspect]
     Active Substance: AMLODIPINE BESYLATE
     Dosage: UNK
  5. LISINOPRIL [Suspect]
     Active Substance: LISINOPRIL
     Indication: Hypertension
     Dosage: UNK
  6. LISINOPRIL [Suspect]
     Active Substance: LISINOPRIL
     Dosage: UNK
     Route: 065
  7. LISINOPRIL [Suspect]
     Active Substance: LISINOPRIL
     Dosage: UNK
     Route: 065
  8. LISINOPRIL [Suspect]
     Active Substance: LISINOPRIL
     Dosage: UNK
  9. RAMIPRIL [Suspect]
     Active Substance: RAMIPRIL
     Indication: Hypertension
     Dosage: UNK
     Route: 065
  10. RAMIPRIL [Suspect]
     Active Substance: RAMIPRIL
     Dosage: UNK
  11. RAMIPRIL [Suspect]
     Active Substance: RAMIPRIL
     Dosage: UNK
  12. RAMIPRIL [Suspect]
     Active Substance: RAMIPRIL
     Dosage: UNK
     Route: 065
  13. RAMIPRIL [Suspect]
     Active Substance: RAMIPRIL
     Dosage: 5 MILLIGRAM, BID (AFTER BREAKFAST, AFTER LUNCH)
     Route: 065
  14. RAMIPRIL [Suspect]
     Active Substance: RAMIPRIL
     Dosage: 5 MILLIGRAM, BID (AFTER BREAKFAST, AFTER LUNCH)
  15. RAMIPRIL [Suspect]
     Active Substance: RAMIPRIL
     Dosage: 5 MILLIGRAM, BID (AFTER BREAKFAST, AFTER LUNCH)
  16. RAMIPRIL [Suspect]
     Active Substance: RAMIPRIL
     Dosage: 5 MILLIGRAM, BID (AFTER BREAKFAST, AFTER LUNCH)
     Route: 065
  17. LEVOTHYROXINE SODIUM [Suspect]
     Active Substance: LEVOTHYROXINE SODIUM
     Indication: Goitre
     Dosage: UNK
     Route: 065
  18. LEVOTHYROXINE SODIUM [Suspect]
     Active Substance: LEVOTHYROXINE SODIUM
     Dosage: UNK
  19. LEVOTHYROXINE SODIUM [Suspect]
     Active Substance: LEVOTHYROXINE SODIUM
     Dosage: UNK
  20. LEVOTHYROXINE SODIUM [Suspect]
     Active Substance: LEVOTHYROXINE SODIUM
     Dosage: UNK
     Route: 065
  21. LEVOTHYROXINE SODIUM [Suspect]
     Active Substance: LEVOTHYROXINE SODIUM
     Dosage: 75 BEFORE BREAKFAST
     Route: 065
  22. LEVOTHYROXINE SODIUM [Suspect]
     Active Substance: LEVOTHYROXINE SODIUM
     Dosage: 75 BEFORE BREAKFAST
  23. LEVOTHYROXINE SODIUM [Suspect]
     Active Substance: LEVOTHYROXINE SODIUM
     Dosage: 75 BEFORE BREAKFAST
  24. LEVOTHYROXINE SODIUM [Suspect]
     Active Substance: LEVOTHYROXINE SODIUM
     Dosage: 75 BEFORE BREAKFAST
     Route: 065
  25. PANTOPRAZOLE [Suspect]
     Active Substance: PANTOPRAZOLE
     Indication: Product used for unknown indication
     Dosage: UNK
  26. PANTOPRAZOLE [Suspect]
     Active Substance: PANTOPRAZOLE
     Dosage: UNK
     Route: 065
  27. PANTOPRAZOLE [Suspect]
     Active Substance: PANTOPRAZOLE
     Dosage: UNK
     Route: 065
  28. PANTOPRAZOLE [Suspect]
     Active Substance: PANTOPRAZOLE
     Dosage: UNK
  29. VALSARTAN [Suspect]
     Active Substance: VALSARTAN
     Indication: Hypertension
     Dosage: UNK
  30. VALSARTAN [Suspect]
     Active Substance: VALSARTAN
     Dosage: UNK
     Route: 065
  31. VALSARTAN [Suspect]
     Active Substance: VALSARTAN
     Dosage: UNK
     Route: 065
  32. VALSARTAN [Suspect]
     Active Substance: VALSARTAN
     Dosage: UNK
  33. PIRETANIDE\RAMIPRIL [Suspect]
     Active Substance: PIRETANIDE\RAMIPRIL
     Indication: Hypertension
     Dosage: 40 MILLIGRAM, BID (IN THE MORNING AND EVENING)
  34. PIRETANIDE\RAMIPRIL [Suspect]
     Active Substance: PIRETANIDE\RAMIPRIL
     Dosage: 40 MILLIGRAM, BID (IN THE MORNING AND EVENING)
     Route: 065
  35. PIRETANIDE\RAMIPRIL [Suspect]
     Active Substance: PIRETANIDE\RAMIPRIL
     Dosage: 40 MILLIGRAM, BID (IN THE MORNING AND EVENING)
     Route: 065
  36. PIRETANIDE\RAMIPRIL [Suspect]
     Active Substance: PIRETANIDE\RAMIPRIL
     Dosage: 40 MILLIGRAM, BID (IN THE MORNING AND EVENING)
  37. URAPIDIL [Suspect]
     Active Substance: URAPIDIL
     Indication: Hypertension
     Dosage: ??-???-2024 00:00
  38. URAPIDIL [Suspect]
     Active Substance: URAPIDIL
     Dosage: ??-???-2024 00:00
     Route: 065
  39. URAPIDIL [Suspect]
     Active Substance: URAPIDIL
     Dosage: ??-???-2024 00:00
     Route: 065
  40. URAPIDIL [Suspect]
     Active Substance: URAPIDIL
     Dosage: ??-???-2024 00:00
  41. NIFEDIPINE [Suspect]
     Active Substance: NIFEDIPINE
     Indication: Hypertension
     Dosage: UNK
  42. NIFEDIPINE [Suspect]
     Active Substance: NIFEDIPINE
     Dosage: UNK
     Route: 065
  43. NIFEDIPINE [Suspect]
     Active Substance: NIFEDIPINE
     Dosage: UNK
     Route: 065
  44. NIFEDIPINE [Suspect]
     Active Substance: NIFEDIPINE
     Dosage: UNK

REACTIONS (21)
  - Cerebral haemorrhage [Unknown]
  - Head injury [Unknown]
  - Osteorrhagia [Unknown]
  - Loss of consciousness [Unknown]
  - Dementia [Unknown]
  - Thyroid operation [Unknown]
  - Thyroidectomy [Unknown]
  - Respiration abnormal [Unknown]
  - Throat tightness [Unknown]
  - Back pain [Unknown]
  - Influenza [Unknown]
  - Chest pain [Unknown]
  - Bowel movement irregularity [Unknown]
  - Memory impairment [Unknown]
  - Flatulence [Unknown]
  - Tremor [Unknown]
  - Balance disorder [Not Recovered/Not Resolved]
  - Tinnitus [Unknown]
  - Headache [Unknown]
  - Hypotension [Unknown]
  - Wrong technique in product usage process [Unknown]

NARRATIVE: CASE EVENT DATE: 20050101
